FAERS Safety Report 6015491-2 (Version None)
Quarter: 2008Q4

REPORT INFORMATION
  Report Type: 
  Country: None (occurrence: None)
  Receive Date: 20081218
  Receipt Date: 20081210
  Transmission Date: 20090506
  Serious: Yes (Hospitalization, Other)
  Sender: FDA-Public Use
  Company Number: UKP08000102

PATIENT
  Age: 57 Year
  Sex: Male

DRUGS (3)
  1. ACTONEL [Suspect]
     Indication: OSTEOPOROSIS
     Dosage: 35 MG, 1/WEEK, ORAL
     Route: 048
     Dates: start: 20050301, end: 20071001
  2. MESALAMINE [Concomitant]
  3. CALCICHEW (CALCIUM CARBONATE) [Concomitant]

REACTIONS (3)
  - HAEMATURIA [None]
  - PROSTATIC DISORDER [None]
  - PROSTATOMEGALY [None]
